FAERS Safety Report 24664396 (Version 1)
Quarter: 2024Q4

REPORT INFORMATION
  Report Type: Spontaneous
  Country: GB (occurrence: GB)
  Receive Date: 20241126
  Receipt Date: 20241126
  Transmission Date: 20250115
  Serious: Yes (Other)
  Sender: ELI LILLY AND COMPANY
  Company Number: None

PATIENT
  Age: 77 Year
  Sex: Female
  Weight: 89 kg

DRUGS (6)
  1. MOUNJARO [Suspect]
     Active Substance: TIRZEPATIDE
     Indication: Product used for unknown indication
     Dosage: INJECT ONE 0.6 ML DOSE SUBCUTANEOUSLY ONCE EACH WEEK
     Route: 058
     Dates: start: 20240901, end: 20241112
  2. NYSTATIN [Concomitant]
     Active Substance: NYSTATIN
     Indication: Product used for unknown indication
     Dosage: 1ML TO BE DROPPED INTO THE MOUTH FOUR TIMES A DAY.
     Dates: start: 20240925, end: 20241024
  3. MICONAZOLE [Concomitant]
     Active Substance: MICONAZOLE
     Indication: Product used for unknown indication
     Dosage: APPLY TWICE A DAY
     Dates: start: 20240925, end: 20241107
  4. TRAMADOL [Concomitant]
     Active Substance: TRAMADOL
     Indication: Product used for unknown indication
     Dosage: ONE TO BE TAKEN UP TO FOUR TIMES PER DAY AS REQUIRED. USE SPARINGLY.
     Dates: start: 20241014
  5. ADJUVANTED QUADRIVALENT INFLUENZA VACCINE [Concomitant]
     Indication: Product used for unknown indication
     Dosage: AS DIRECTED
     Dates: start: 20241019
  6. SPIKEVAX [Concomitant]
     Active Substance: CX-046684
     Indication: Product used for unknown indication
     Dosage: 0.5 ML INTRAMUSCULAR
     Route: 030
     Dates: start: 20241019

REACTIONS (3)
  - Gastrooesophageal reflux disease [Unknown]
  - Alopecia [Unknown]
  - Eczema [Unknown]
